FAERS Safety Report 9152042 (Version 2)
Quarter: 2013Q3

REPORT INFORMATION
  Report Type: Report from Study
  Country: US (occurrence: US)
  Receive Date: 20130308
  Receipt Date: 20130708
  Transmission Date: 20140515
  Serious: Yes (Other)
  Sender: FDA-Public Use
  Company Number: US-ELI_LILLY_AND_COMPANY-US201206003852

PATIENT
  Age: 62 Year
  Sex: Female

DRUGS (3)
  1. TERIPARATIDE [Suspect]
     Indication: OSTEOPOROSIS
     Dosage: 20 UG, QD
     Dates: start: 201203
  2. TERIPARATIDE [Suspect]
     Dosage: 20 UG, QD
  3. TERIPARATIDE [Suspect]
     Dosage: 20 UG, QD

REACTIONS (6)
  - Convulsion [Unknown]
  - Hypotension [Unknown]
  - Local swelling [Unknown]
  - Weight decreased [Unknown]
  - Contusion [Unknown]
  - Incorrect dose administered [Unknown]
